FAERS Safety Report 10866556 (Version 1)
Quarter: 2015Q1

REPORT INFORMATION
  Report Type: Spontaneous
  Country: US (occurrence: None)
  Receive Date: 20150220
  Receipt Date: 20150220
  Transmission Date: 20150721
  Serious: Yes (Life-Threatening)
  Sender: FDA-Public Use
  Company Number: None

PATIENT
  Age: 49 Year
  Sex: Male
  Weight: 113.4 kg

DRUGS (9)
  1. TACROLIMUS 1MG ACCORD HEALTHCARE [Suspect]
     Active Substance: TACROLIMUS
     Indication: PROPHYLAXIS AGAINST TRANSPLANT REJECTION
     Dosage: 4 CAPSULES IN AM AND 3 IN PM
     Route: 048
     Dates: start: 20141101, end: 20150123
  2. ZYLOPRIM [Concomitant]
     Active Substance: ALLOPURINOL
  3. PROGRAF [Concomitant]
     Active Substance: TACROLIMUS\TACROLIMUS ANHYDROUS
  4. VITAMIN D3 [Concomitant]
     Active Substance: CHOLECALCIFEROL
  5. PEPCID [Concomitant]
     Active Substance: FAMOTIDINE
  6. ADALAT [Concomitant]
     Active Substance: NIFEDIPINE
  7. MYFORTIC [Concomitant]
     Active Substance: MYCOPHENOLATE SODIUM
  8. LOPRESSOR [Concomitant]
     Active Substance: METOPROLOL TARTRATE
  9. KEFLEX [Concomitant]
     Active Substance: CEPHALEXIN

REACTIONS (4)
  - Product substitution issue [None]
  - Drug level decreased [None]
  - Kidney transplant rejection [None]
  - Product quality issue [None]

NARRATIVE: CASE EVENT DATE: 20150205
